FAERS Safety Report 6861962-6 (Version None)
Quarter: 2010Q3

REPORT INFORMATION
  Report Type: 
  Country: None (occurrence: None)
  Receive Date: 20100721
  Receipt Date: 20100420
  Transmission Date: 20110219
  Serious: No
  Sender: FDA-Public Use
  Company Number: US-BAYER-201020021NA

PATIENT
  Age: 31 Year
  Sex: Female

DRUGS (1)
  1. CLIMARA [Suspect]
     Indication: MENOPAUSE
     Route: 062
     Dates: start: 20100401

REACTIONS (3)
  - APPLICATION SITE RASH [None]
  - HOT FLUSH [None]
  - RASH [None]
